FAERS Safety Report 5450273-1 (Version None)
Quarter: 2007Q3

REPORT INFORMATION
  Report Type: 
  Country: None (occurrence: None)
  Receive Date: 20070912
  Receipt Date: 20070904
  Transmission Date: 20080115
  Serious: Yes (Hospitalization)
  Sender: FDA-Public Use
  Company Number: US-AMGEN-QUU241542

PATIENT
  Sex: Female

DRUGS (1)
  1. ENBREL [Suspect]
     Indication: RHEUMATOID ARTHRITIS
     Dates: start: 20040901

REACTIONS (5)
  - ECZEMA [None]
  - FACIAL PAIN [None]
  - PRURITUS [None]
  - STEVENS-JOHNSON SYNDROME [None]
  - SWELLING [None]
